FAERS Safety Report 9204790 (Version 1)
Quarter: 2013Q2

REPORT INFORMATION
  Report Type: Report from Study
  Country: JP (occurrence: JP)
  Receive Date: 20130402
  Receipt Date: 20130402
  Transmission Date: 20140414
  Serious: Yes (Hospitalization)
  Sender: FDA-Public Use
  Company Number: JP-GLAXOSMITHKLINE-B0670468A

PATIENT
  Age: 81 Year
  Sex: Female
  Weight: 43 kg

DRUGS (11)
  1. TYKERB [Suspect]
     Indication: BREAST CANCER
     Route: 048
     Dates: start: 20090804, end: 20100331
  2. XELODA [Suspect]
     Indication: PRODUCT USED FOR UNKNOWN INDICATION
     Route: 048
     Dates: start: 20090804, end: 20090817
  3. XELODA [Suspect]
     Indication: PRODUCT USED FOR UNKNOWN INDICATION
     Route: 048
     Dates: start: 20090827, end: 20100317
  4. LENDORMIN [Concomitant]
     Indication: INSOMNIA
     Route: 048
  5. BAYASPIRIN [Concomitant]
     Indication: ANGINA PECTORIS
     Route: 048
  6. CONIEL [Concomitant]
     Indication: HYPERTENSION
     Route: 048
  7. ALFAROL [Concomitant]
     Indication: OSTEOPOROSIS
     Route: 048
  8. NERIPROCT [Concomitant]
     Indication: CONSTIPATION
     Route: 062
  9. BORRAZA-G [Concomitant]
     Indication: HAEMORRHOIDS
     Route: 062
  10. SELTOUCH [Concomitant]
     Indication: BACK PAIN
     Route: 062
  11. TAKEPRON [Concomitant]
     Indication: GASTROOESOPHAGEAL REFLUX DISEASE
     Route: 048
     Dates: start: 20100106

REACTIONS (12)
  - Neurotoxicity [Recovered/Resolved]
  - Fatigue [Recovered/Resolved]
  - Decreased appetite [Recovered/Resolved]
  - Nausea [Recovered/Resolved]
  - Rash [Recovered/Resolved]
  - Pyrexia [Recovered/Resolved]
  - Palmar-plantar erythrodysaesthesia syndrome [Recovered/Resolved]
  - Fatigue [Recovered/Resolved]
  - Alopecia [Recovered/Resolved]
  - Decreased appetite [Recovered/Resolved]
  - Nausea [Recovered/Resolved]
  - Palmar-plantar erythrodysaesthesia syndrome [Recovered/Resolved]
